FAERS Safety Report 5330596-7 (Version None)
Quarter: 2007Q2

REPORT INFORMATION
  Report Type: 
  Country: None (occurrence: None)
  Receive Date: 20070516
  Receipt Date: 20070510
  Transmission Date: 20071010
  Serious: Yes (Hospitalization)
  Sender: FDA-Public Use
  Company Number: GXKR2007GB04215

PATIENT
  Age: 61 Year
  Sex: Female

DRUGS (14)
  1. ASPIRIN [Suspect]
     Dosage: 75 MG, QD, ORAL
     Route: 048
  2. WARFARIN SODIUM [Suspect]
     Dosage: ORAL
     Route: 048
  3. BECLOMETHASONE DIPROPIONATE [Concomitant]
  4. CARMELLOSE (CARMELLOSE) [Concomitant]
  5. CO-CODAMOL (CODEINE PHOSPHATE, PARACETAMOL) [Concomitant]
  6. DIGOXIN [Concomitant]
  7. DILTIAZEM HYDROCHLORIDE [Concomitant]
  8. GTN (GLYCERYL TRINITRATE) [Concomitant]
  9. LANSOPRAZOLE [Concomitant]
  10. LIPITOR [Concomitant]
  11. RAMIPRIL [Concomitant]
  12. SALBUTAMOL (SALBUTAMOL) [Concomitant]
  13. SENNA (SENNA, SENNA ALEXANDRINA) [Concomitant]
  14. SEREVENT [Concomitant]

REACTIONS (6)
  - DRUG INTERACTION [None]
  - DYSPNOEA [None]
  - HAEMOGLOBIN DECREASED [None]
  - HIATUS HERNIA [None]
  - OESOPHAGITIS [None]
  - ULCER [None]
